FAERS Safety Report 8107253-7 (Version None)
Quarter: 2011Q4

REPORT INFORMATION
  Report Type: 
  Country: None (occurrence: None)
  Receive Date: 20111227
  Receipt Date: 20111017
  Transmission Date: 20120403
  Serious: Yes (Other)
  Sender: FDA-Public Use
  Company Number: PHEH2011US05262

PATIENT
  Age: 52 Year
  Sex: Female
  Weight: 58.5 kg

DRUGS (4)
  1. THYROID TAB [Concomitant]
  2. REBIF [Concomitant]
  3. GILENYA [Suspect]
     Indication: RELAPSING-REMITTING MULTIPLE SCLEROSIS
     Dosage: 0.5 MG, QD, ORAL, EVERY OTHER DAY
     Route: 048
     Dates: start: 20111007
  4. GILENYA [Suspect]
     Indication: RELAPSING-REMITTING MULTIPLE SCLEROSIS
     Dosage: 0.5 MG, QD, ORAL, EVERY OTHER DAY
     Route: 048
     Dates: start: 20110501, end: 20110920

REACTIONS (2)
  - LYMPHOCYTE COUNT DECREASED [None]
  - WHITE BLOOD CELL COUNT DECREASED [None]
